FAERS Safety Report 23517474 (Version 9)
Quarter: 2025Q1

REPORT INFORMATION
  Report Type: Report from Study
  Country: NZ (occurrence: NZ)
  Receive Date: 20240213
  Receipt Date: 20250123
  Transmission Date: 20250409
  Serious: Yes (Hospitalization)
  Sender: SPRINGWORKS THERAPEUTIC
  Company Number: NZ-SPRINGWORKS THERAPEUTICS-SW-001219

PATIENT
  Age: 66 Year
  Sex: Female
  Weight: 53 kg

DRUGS (10)
  1. NIROGACESTAT [Suspect]
     Active Substance: NIROGACESTAT
     Indication: Desmoid tumour
     Dosage: 150 MILLIGRAM, BID
     Route: 048
     Dates: start: 20231205, end: 20231212
  2. NIROGACESTAT [Suspect]
     Active Substance: NIROGACESTAT
     Dosage: 100 MILLIGRAM, BID
     Route: 048
     Dates: start: 20231229, end: 20240106
  3. NIROGACESTAT [Suspect]
     Active Substance: NIROGACESTAT
     Dosage: 100 MILLIGRAM, BID
     Route: 048
     Dates: start: 20240123, end: 20240216
  4. NIROGACESTAT [Suspect]
     Active Substance: NIROGACESTAT
     Dosage: 50 MILLIGRAM, BID
     Route: 048
     Dates: start: 20240229, end: 20240311
  5. NIROGACESTAT [Suspect]
     Active Substance: NIROGACESTAT
     Route: 048
     Dates: start: 20240312, end: 20240315
  6. NIROGACESTAT [Suspect]
     Active Substance: NIROGACESTAT
     Route: 048
     Dates: start: 20240320, end: 20240321
  7. NIROGACESTAT [Suspect]
     Active Substance: NIROGACESTAT
     Dosage: 50 MILLIGRAM, BID
     Route: 048
     Dates: start: 20240417, end: 20240430
  8. GABAPENTIN [Concomitant]
     Active Substance: GABAPENTIN
     Indication: Product used for unknown indication
  9. DOMPERIDONE [Concomitant]
     Active Substance: DOMPERIDONE
     Indication: Nausea
     Dosage: 10 MILLIGRAM, TID, PRN
  10. DILTIAZEM [Concomitant]
     Active Substance: DILTIAZEM
     Indication: Supraventricular tachycardia
     Dosage: 120 MILLIGRAM, QD

REACTIONS (7)
  - Diarrhoea [Recovered/Resolved]
  - Diarrhoea [Recovered/Resolved]
  - Hypophosphataemia [Recovered/Resolved]
  - Diarrhoea [Recovered/Resolved]
  - Diarrhoea [Recovered/Resolved]
  - Diarrhoea [Recovered/Resolved]
  - Hypophosphataemia [Recovered/Resolved]

NARRATIVE: CASE EVENT DATE: 20231212
